FAERS Safety Report 12465037 (Version 1)
Quarter: 2016Q2

REPORT INFORMATION
  Report Type: Spontaneous
  Country: PL (occurrence: PL)
  Receive Date: 20160614
  Receipt Date: 20160614
  Transmission Date: 20160815
  Serious: Yes (Death, Life-Threatening, Other)
  Sender: FDA-Public Use
  Company Number: PL-TEVA-667467ISR

PATIENT
  Age: 55 Year
  Sex: Male

DRUGS (6)
  1. VORICONAZOLE. [Suspect]
     Active Substance: VORICONAZOLE
     Indication: ANTIFUNGAL TREATMENT
  2. VANKOMYCIN [Concomitant]
     Indication: ANTIBIOTIC THERAPY
  3. FLUCONAZOLE. [Suspect]
     Active Substance: FLUCONAZOLE
     Indication: ANTIFUNGAL TREATMENT
  4. IMIPENEM AND CILASTATIN [Concomitant]
     Active Substance: CILASTATIN SODIUM\IMIPENEM
     Indication: ANTIBIOTIC THERAPY
  5. ADRENALINE [Concomitant]
     Active Substance: EPINEPHRINE
     Indication: HAEMORRHAGE
     Dosage: INJECTION OF DILUTE ADRENALINE AROUND THE AREAS OF HEMORRHAGING MUCOSA
  6. ENOXAPARIN SODIUM. [Concomitant]
     Active Substance: ENOXAPARIN SODIUM
     Indication: PROPHYLAXIS
     Dosage: DURING THE ENTIRE HOSPITAL STAY
     Route: 058

REACTIONS (4)
  - Pulmonary embolism [Fatal]
  - Fungal infection [Fatal]
  - Cardiac arrest [Recovered/Resolved]
  - Drug ineffective [Unknown]
